FAERS Safety Report 6483649-4 (Version None)
Quarter: 2009Q4

REPORT INFORMATION
  Report Type: 
  Country: None (occurrence: None)
  Receive Date: 20091209
  Receipt Date: 20091127
  Transmission Date: 20100525
  Serious: Yes (Hospitalization, Other)
  Sender: FDA-Public Use
  Company Number: PHHY2009MX31910

PATIENT
  Sex: Female

DRUGS (9)
  1. EXFORGE [Suspect]
     Indication: HYPERTENSION
     Dosage: 2 DF (160/5 MG) PER DAY
     Route: 048
     Dates: start: 20090101, end: 20090807
  2. EXFORGE [Suspect]
     Dosage: 2 TABLETS PER DAY
     Route: 048
     Dates: start: 20091114
  3. RASILEZ [Suspect]
     Dosage: 1 DF (150 MG) PER DAY
     Route: 048
     Dates: start: 20090501, end: 20090801
  4. PRIMPERAN TAB [Concomitant]
  5. TEBONIN - SLOW RELEASE [Concomitant]
  6. ANGIOTROFIN [Concomitant]
  7. PERSANTIN [Concomitant]
  8. DISGREN [Concomitant]
  9. DIPHENYLHYDANTOIN [Concomitant]

REACTIONS (3)
  - CEREBROVASCULAR INSUFFICIENCY [None]
  - HYPERTENSIVE CRISIS [None]
  - INFLUENZA [None]
